FAERS Safety Report 8284180-6 (Version None)
Quarter: 2012Q2

REPORT INFORMATION
  Report Type: 
  Country: None (occurrence: None)
  Receive Date: 20120413
  Receipt Date: 20120126
  Transmission Date: 20120825
  Serious: No
  Sender: FDA-Public Use
  Company Number: US-ASTRAZENECA-2012SE06012

PATIENT
  Age: 58 Year
  Sex: Male

DRUGS (3)
  1. PEPCID [Concomitant]
  2. PREVACID [Concomitant]
  3. NEXIUM [Suspect]
     Route: 048

REACTIONS (2)
  - DYSPEPSIA [None]
  - DRUG DOSE OMISSION [None]
